FAERS Safety Report 7873495-9 (Version None)
Quarter: 2011Q4

REPORT INFORMATION
  Report Type: 
  Country: None (occurrence: None)
  Receive Date: 20111030
  Receipt Date: 20110504
  Transmission Date: 20120403
  Serious: Yes (Hospitalization)
  Sender: FDA-Public Use
  Company Number: US-AMGEN-USASP2011023327

PATIENT
  Age: 62 Year
  Sex: Female

DRUGS (3)
  1. REMICADE [Concomitant]
  2. ENBREL [Suspect]
     Indication: PSORIASIS
  3. ENBREL [Suspect]
     Indication: RHEUMATOID ARTHRITIS
     Dosage: 50 MG, 2 TIMES/WK
     Dates: start: 19990101

REACTIONS (4)
  - RHEUMATOID ARTHRITIS [None]
  - BLOOD GLUCOSE ABNORMAL [None]
  - CHOLECYSTITIS INFECTIVE [None]
  - PSORIASIS [None]
